FAERS Safety Report 15607370 (Version 1)
Quarter: 2018Q4

REPORT INFORMATION
  Report Type: Spontaneous
  Country: FR (occurrence: FR)
  Receive Date: 20181112
  Receipt Date: 20181112
  Transmission Date: 20190205
  Serious: Yes (Hospitalization)
  Sender: FDA-Public Use
  Company Number: FR-009507513-1811FRA001792

PATIENT
  Age: 93 Year
  Sex: Female
  Weight: 50 kg

DRUGS (1)
  1. NORSET [Suspect]
     Active Substance: MIRTAZAPINE
     Indication: DEPRESSION
     Dosage: 15 MILLIGRAM, ONCE
     Route: 048
     Dates: start: 20181002, end: 20181002

REACTIONS (4)
  - Aphasia [Recovered/Resolved]
  - Hypersomnia [Recovered/Resolved]
  - Hallucination [Recovered/Resolved]
  - Movement disorder [Recovered/Resolved]

NARRATIVE: CASE EVENT DATE: 20181003
